FAERS Safety Report 24541180 (Version 1)
Quarter: 2024Q4

REPORT INFORMATION
  Report Type: Spontaneous
  Country: BR (occurrence: BR)
  Receive Date: 20241023
  Receipt Date: 20241023
  Transmission Date: 20250115
  Serious: Yes (Other)
  Sender: MERCK KGAA
  Company Number: BR-Merck Healthcare KGaA-2024053884

PATIENT
  Sex: Female

DRUGS (2)
  1. EUTHYROX [Suspect]
     Active Substance: LEVOTHYROXINE SODIUM
     Indication: Hypothyroidism
     Route: 048
     Dates: start: 1996
  2. EUTHYROX [Suspect]
     Active Substance: LEVOTHYROXINE SODIUM
     Dosage: EXPIRATION DATE: OCT-2025, 1 TABLET EVERY DAY IN THE MORNING ON AN EMPTY STOMACH
     Route: 048

REACTIONS (3)
  - Lip and/or oral cavity cancer [Not Recovered/Not Resolved]
  - Oral disorder [Not Recovered/Not Resolved]
  - Toothache [Not Recovered/Not Resolved]
